FAERS Safety Report 9116626 (Version 2)
Quarter: 2013Q1

REPORT INFORMATION
  Report Type: Report from Study
  Country: DE (occurrence: DE)
  Receive Date: 20130225
  Receipt Date: 20130301
  Transmission Date: 20140127
  Serious: Yes (Death)
  Sender: FDA-Public Use
  Company Number: DE-ROCHE-1194220

PATIENT
  Sex: Male

DRUGS (5)
  1. BEVACIZUMAB [Suspect]
     Indication: RECTAL CANCER
     Route: 042
     Dates: start: 20110531, end: 20110531
  2. ELOXATIN [Concomitant]
     Indication: RECTAL CANCER
     Route: 042
     Dates: start: 20110531, end: 20110531
  3. 5-FU [Concomitant]
     Indication: RECTAL CANCER
     Route: 040
     Dates: start: 20110518, end: 20110701
  4. 5-FU [Concomitant]
     Route: 042
     Dates: start: 20110518, end: 20110601
  5. FOLINIC ACID [Concomitant]
     Indication: RECTAL CANCER
     Route: 042
     Dates: start: 20110518, end: 20110601

REACTIONS (2)
  - Renal failure acute [Fatal]
  - General physical health deterioration [Fatal]
